FAERS Safety Report 19657034 (Version 1)
Quarter: 2021Q3

REPORT INFORMATION
  Report Type: Spontaneous
  Country: US (occurrence: US)
  Receive Date: 20210804
  Receipt Date: 20210804
  Transmission Date: 20211014
  Serious: Yes (Other)
  Sender: FDA-Public Use
  Company Number: US-PFIZER INC-2020218819

PATIENT
  Age: 39 Year
  Sex: Female

DRUGS (1)
  1. XELJANZ XR [Suspect]
     Active Substance: TOFACITINIB CITRATE
     Dosage: 11 MG
     Dates: start: 20200401

REACTIONS (11)
  - Psoriatic arthropathy [Unknown]
  - Arthritis [Unknown]
  - Insomnia [Unknown]
  - Drug ineffective [Unknown]
  - Arthralgia [Unknown]
  - Spondyloarthropathy [Unknown]
  - Pain [Unknown]
  - Abdominal pain upper [Unknown]
  - Sacroiliitis [Unknown]
  - Spondylitis [Unknown]
  - Product dose omission issue [Unknown]
